FAERS Safety Report 4315284-8 (Version None)
Quarter: 2004Q1

REPORT INFORMATION
  Report Type: 
  Country: None (occurrence: None)
  Receive Date: 20040309
  Receipt Date: 20040220
  Transmission Date: 20041129
  Serious: Yes (Life-Threatening)
  Sender: FDA-Public Use
  Company Number: BE-SHR-04-021586

PATIENT
  Age: 44 Year
  Sex: Female

DRUGS (1)
  1. MIRENA [Suspect]
     Indication: CONTRACEPTION
     Dosage: 20 UG/DAY,CONT, INTRA-UTERINE
     Route: 015
     Dates: start: 20000501, end: 20040101

REACTIONS (1)
  - ILIAC VEIN THROMBOSIS [None]
